FAERS Safety Report 6785939-4 (Version None)
Quarter: 2010Q2

REPORT INFORMATION
  Report Type: 
  Country: None (occurrence: None)
  Receive Date: 20100623
  Receipt Date: 20100616
  Transmission Date: 20101027
  Serious: Yes (Other)
  Sender: FDA-Public Use
  Company Number: CA-BRISTOL-MYERS SQUIBB COMPANY-15037641

PATIENT
  Age: 39 Year
  Sex: Female

DRUGS (1)
  1. ORENCIA [Suspect]
     Indication: RHEUMATOID ARTHRITIS
     Dosage: TOTAL 24 INF 25-MAR-2010,16JUN10
     Route: 042
     Dates: start: 20080924

REACTIONS (4)
  - CROHN'S DISEASE [None]
  - JOINT SWELLING [None]
  - RHEUMATOID ARTHRITIS [None]
  - STRESS [None]
